FAERS Safety Report 16135420 (Version 1)
Quarter: 2019Q1

REPORT INFORMATION
  Report Type: Spontaneous
  Country: US (occurrence: US)
  Receive Date: 20190329
  Receipt Date: 20190329
  Transmission Date: 20190418
  Serious: No
  Sender: FDA-Public Use
  Company Number: US-BAUSCH-BL-2018-010054

PATIENT
  Sex: Female
  Weight: 61.29 kg

DRUGS (3)
  1. RENOVA [Suspect]
     Active Substance: TRETINOIN
     Indication: THERAPEUTIC SKIN CARE TOPICAL
     Dosage: BEGAN USING RENOVA ON HER FACE TWENTY YEARS AGO
     Route: 061
  2. LATANOPROST. [Concomitant]
     Active Substance: LATANOPROST
     Indication: PRODUCT USED FOR UNKNOWN INDICATION
     Route: 065
  3. RENOVA [Suspect]
     Active Substance: TRETINOIN
     Indication: SKIN DISORDER
     Dosage: MONTH AND A HALF AGO PATIENT BEGAN USING RENOVA ON HER LEGS
     Route: 061
     Dates: end: 2018

REACTIONS (5)
  - Erythema [Unknown]
  - Pruritus [Unknown]
  - Skin exfoliation [Unknown]
  - Expired product administered [Recovered/Resolved]
  - Treatment noncompliance [Unknown]
